FAERS Safety Report 16636009 (Version 4)
Quarter: 2019Q3

REPORT INFORMATION
  Report Type: Spontaneous
  Country: DE (occurrence: DE)
  Receive Date: 20190726
  Receipt Date: 20190906
  Transmission Date: 20191004
  Serious: Yes (Hospitalization)
  Sender: FDA-Public Use
  Company Number: DE-NOVOPROD-674365

PATIENT
  Age: 5 Year
  Sex: Male
  Weight: 20 kg

DRUGS (4)
  1. NOVORAPID [Suspect]
     Active Substance: INSULIN ASPART
     Indication: TYPE 1 DIABETES MELLITUS
     Dosage: UNK
     Route: 058
     Dates: start: 20151015
  2. NOVORAPID [Suspect]
     Active Substance: INSULIN ASPART
     Dosage: UNK (DOSE INCREASED)
     Route: 058
  3. NOVORAPID [Suspect]
     Active Substance: INSULIN ASPART
     Dosage: 3.21 IU, QD
     Route: 058
     Dates: start: 20190706, end: 20190715
  4. NOVORAPID [Suspect]
     Active Substance: INSULIN ASPART
     Dosage: NEW CARTRIDGE
     Route: 058
     Dates: start: 20190802

REACTIONS (6)
  - Drug ineffective [Unknown]
  - Diabetic ketoacidosis [Recovered/Resolved]
  - Hyperglycaemia [Recovered/Resolved]
  - Wrong technique in product usage process [Unknown]
  - Urine ketone body present [Unknown]
  - Product storage error [Unknown]

NARRATIVE: CASE EVENT DATE: 20190711
